FAERS Safety Report 11767865 (Version 1)
Quarter: 2015Q4

REPORT INFORMATION
  Report Type: Spontaneous
  Country: US (occurrence: None)
  Receive Date: 20151120
  Receipt Date: 20151120
  Transmission Date: 20160304
  Serious: Yes (Other)
  Sender: FDA-Public Use
  Company Number: None

PATIENT
  Age: 30 Year
  Sex: Female
  Weight: 63.5 kg

DRUGS (3)
  1. BIRTH CONTROL PILL [Concomitant]
     Active Substance: UNSPECIFIED INGREDIENT
  2. ALIVE! WOMEN^S DAILY MULTIVITAMIN [Concomitant]
  3. TRANSDERM SCOP [Suspect]
     Active Substance: SCOPOLAMINE
     Indication: PROPHYLAXIS AGAINST MOTION SICKNESS
     Dosage: 1 PATCH EVERY 72 HOURS APPLIED TO A SURFACE, USUALLY THE SKIN
     Route: 061
     Dates: start: 20151109, end: 20151109

REACTIONS (14)
  - Vertigo [None]
  - Dizziness [None]
  - Gait disturbance [None]
  - Confusional state [None]
  - Mental impairment [None]
  - Drug effect increased [None]
  - Fear [None]
  - Mydriasis [None]
  - Disorientation [None]
  - Anxiety [None]
  - Dry mouth [None]
  - Vision blurred [None]
  - Headache [None]
  - Impaired work ability [None]

NARRATIVE: CASE EVENT DATE: 20151109
